FAERS Safety Report 16028537 (Version 1)
Quarter: 2019Q1

REPORT INFORMATION
  Report Type: Spontaneous
  Country: US (occurrence: US)
  Receive Date: 20190304
  Receipt Date: 20190304
  Transmission Date: 20190418
  Serious: No
  Sender: FDA-Public Use
  Company Number: US-DRREDDYS-USA/USA/19/0108177

PATIENT
  Age: 13 Year
  Sex: Male

DRUGS (6)
  1. TENEX [Suspect]
     Active Substance: GUANFACINE HYDROCHLORIDE
     Indication: ATTENTION DEFICIT/HYPERACTIVITY DISORDER
     Dosage: TOOK HALF TABLET TWO TIMES DAILY
     Route: 065
     Dates: start: 20150526
  2. ILARIS [Concomitant]
     Active Substance: CANAKINUMAB
     Dosage: 150 MG/ML SUBCUTANEOUS SOLUTION; INJECT 120 MG (0.8 ML) UNDER THE SKIN
     Route: 058
     Dates: start: 20170926
  3. FOCALIN [Suspect]
     Active Substance: DEXMETHYLPHENIDATE HYDROCHLORIDE
     Dosage: TOOK 1 CAPSULE DAILY
     Route: 048
     Dates: start: 20150617
  4. ILARIS [Concomitant]
     Active Substance: CANAKINUMAB
     Indication: PRODUCT USED FOR UNKNOWN INDICATION
     Dosage: 180 MG SUBCUTANEOUS SOLUTION RECONSTITUTED; INJECT 120 MG (0.8 ML) UNDER THE SKIN EVERY 8 WEEKS
     Route: 058
     Dates: start: 20160408
  5. FOCALIN [Suspect]
     Active Substance: DEXMETHYLPHENIDATE HYDROCHLORIDE
     Indication: PRODUCT USED FOR UNKNOWN INDICATION
     Route: 048
     Dates: start: 20150617
  6. VITAMIN D [Concomitant]
     Active Substance: CHOLECALCIFEROL
     Indication: PRODUCT USED FOR UNKNOWN INDICATION
     Dosage: 50000 UNIT; TAKE ONE CAPSULE BY MOUTH ONCE WEEKLY
     Route: 048
     Dates: start: 20170125

REACTIONS (2)
  - Wrong technique in product usage process [Unknown]
  - Decreased appetite [Unknown]
